FAERS Safety Report 9166271 (Version 1)
Quarter: 2013Q1

REPORT INFORMATION
  Report Type: Report from Study
  Country: CA (occurrence: CA)
  Receive Date: 20130315
  Receipt Date: 20130315
  Transmission Date: 20140127
  Serious: Yes (Hospitalization)
  Sender: FDA-Public Use
  Company Number: CA-JNJFOC-20130302146

PATIENT
  Sex: Female
  Weight: 59.9 kg

DRUGS (3)
  1. REMICADE [Suspect]
     Indication: CROHN^S DISEASE
     Route: 042
  2. IMURAN [Concomitant]
  3. VITAMIN B 12 [Concomitant]
     Route: 065

REACTIONS (2)
  - Intestinal perforation [Recovered/Resolved]
  - Small intestinal obstruction [Recovered/Resolved]
